FAERS Safety Report 25369465 (Version 1)
Quarter: 2025Q2

REPORT INFORMATION
  Report Type: Spontaneous
  Country: US (occurrence: US)
  Receive Date: 20250528
  Receipt Date: 20250528
  Transmission Date: 20250717
  Serious: No
  Sender: ELI LILLY AND COMPANY
  Company Number: US-ELI_LILLY_AND_COMPANY-US202505020254

PATIENT
  Age: 81 Year
  Sex: Female

DRUGS (1)
  1. BASAGLAR [Suspect]
     Active Substance: INSULIN GLARGINE
     Indication: Diabetes mellitus
     Route: 058

REACTIONS (6)
  - Blood pressure decreased [Unknown]
  - Cataract [Unknown]
  - Headache [Unknown]
  - Cough [Unknown]
  - Blood pressure increased [Unknown]
  - Injury associated with device [Unknown]
